FAERS Safety Report 5745389-6 (Version None)
Quarter: 2008Q2

REPORT INFORMATION
  Report Type: 
  Country: None (occurrence: None)
  Receive Date: 20080521
  Receipt Date: 20080516
  Transmission Date: 20081010
  Serious: Yes (Hospitalization)
  Sender: FDA-Public Use
  Company Number: BE-TEVA-166435ISR

PATIENT
  Sex: Male
  Weight: 76.2 kg

DRUGS (7)
  1. FLUOROURACIL [Suspect]
     Route: 042
     Dates: start: 20080107
  2. FOLINIC ACID [Suspect]
     Route: 042
     Dates: start: 20080107
  3. IRINOTECAN HCL [Suspect]
     Route: 042
     Dates: start: 20080107
  4. NULYTELY [Concomitant]
     Dosage: 1 SACHET
     Route: 048
     Dates: start: 20071220, end: 20071224
  5. NULYTELY [Concomitant]
     Dosage: 2 SACHET
     Route: 048
     Dates: start: 20071224
  6. PANTOPRAZOLE SODIUM [Concomitant]
     Route: 048
     Dates: end: 20080225
  7. PANTOPRAZOLE SODIUM [Concomitant]
     Route: 048
     Dates: start: 20080225

REACTIONS (4)
  - DIARRHOEA [None]
  - DYSPNOEA [None]
  - FEBRILE NEUTROPENIA [None]
  - PNEUMONIA [None]
